FAERS Safety Report 25304777 (Version 1)
Quarter: 2025Q2

REPORT INFORMATION
  Report Type: Spontaneous
  Country: US (occurrence: None)
  Receive Date: 20250512
  Receipt Date: 20250512
  Transmission Date: 20250716
  Serious: Yes (Life-Threatening, Hospitalization, Disabling, Other)
  Sender: FDA-CTU
  Company Number: None

PATIENT
  Age: 33 Year
  Sex: Female
  Weight: 62.1 kg

DRUGS (6)
  1. XEOMIN [Suspect]
     Active Substance: INCOBOTULINUMTOXINA
     Indication: Skin wrinkling
     Route: 050
     Dates: start: 20230309
  2. ZINC [Concomitant]
     Active Substance: ZINC
  3. FISH OIL [Concomitant]
     Active Substance: FISH OIL
  4. MAGNESIUM [Concomitant]
     Active Substance: MAGNESIUM
  5. COLLAGEN [Concomitant]
     Active Substance: COLLAGEN
  6. UNSPECIFIED INGREDIENT [Concomitant]
     Active Substance: UNSPECIFIED INGREDIENT

REACTIONS (7)
  - Botulism [None]
  - Neuralgia [None]
  - Palpitations [None]
  - Skin erosion [None]
  - Inflammation [None]
  - Impaired quality of life [None]
  - Product label confusion [None]

NARRATIVE: CASE EVENT DATE: 20230309
